FAERS Safety Report 14862230 (Version 1)
Quarter: 2018Q2

REPORT INFORMATION
  Report Type: Spontaneous
  Country: US (occurrence: US)
  Receive Date: 20180422
  Receipt Date: 20180422
  Transmission Date: 20180711
  Serious: Yes (Other)
  Sender: FDA-Public Use
  Company Number: None

PATIENT
  Age: 61 Year
  Sex: Female
  Weight: 42.64 kg

DRUGS (1)
  1. LYRICA [Suspect]
     Active Substance: PREGABALIN

REACTIONS (13)
  - Drug dependence [None]
  - Anxiety [None]
  - Weight decreased [None]
  - Drug tolerance [None]
  - Pain [None]
  - Drug withdrawal syndrome [None]
  - Insomnia [None]
  - Tachycardia [None]
  - Asthenia [None]
  - Decreased appetite [None]
  - Diarrhoea [None]
  - Depression [None]
  - Fear [None]

NARRATIVE: CASE EVENT DATE: 20180101
